FAERS Safety Report 15229233 (Version 16)
Quarter: 2022Q2

REPORT INFORMATION
  Report Type: Spontaneous
  Country: US (occurrence: US)
  Receive Date: 20180801
  Receipt Date: 20220414
  Transmission Date: 20220721
  Serious: Yes (Hospitalization, Other)
  Sender: FDA-Public Use
  Company Number: US-BIOMARINAP-US-2018-119199

PATIENT
  Age: 3 Year
  Sex: Male
  Weight: 18.14 kg

DRUGS (14)
  1. LARONIDASE [Suspect]
     Active Substance: LARONIDASE
     Indication: Mucopolysaccharidosis
     Dosage: 14.50 UNK, QW
     Route: 041
     Dates: start: 20180301
  2. LARONIDASE [Suspect]
     Active Substance: LARONIDASE
     Dosage: 11.6 UNK, QW
     Route: 041
     Dates: start: 20180306
  3. LARONIDASE [Suspect]
     Active Substance: LARONIDASE
     Dosage: 29 MG, QW
     Route: 041
     Dates: start: 20180821
  4. LARONIDASE [Suspect]
     Active Substance: LARONIDASE
     Dosage: 14.5 MG, QW
     Route: 041
     Dates: start: 20180107
  5. LARONIDASE [Suspect]
     Active Substance: LARONIDASE
     Dosage: 29 MG, QW
     Route: 041
     Dates: start: 20180821
  6. ACETAMINOPHEN [Concomitant]
     Active Substance: ACETAMINOPHEN
  7. DIPHENHYDRAMINE [Concomitant]
     Active Substance: DIPHENHYDRAMINE
  8. HEPARIN [Concomitant]
     Active Substance: HEPARIN SODIUM
  9. LIDOCAINE\PRILOCAINE [Concomitant]
     Active Substance: LIDOCAINE\PRILOCAINE
  10. SODIUM CHLORIDE [Concomitant]
     Active Substance: SODIUM CHLORIDE
  11. EPINEPHRINE [Concomitant]
     Active Substance: EPINEPHRINE
  12. VITAMINS [Concomitant]
     Active Substance: VITAMINS
  13. SODIUM CHLORIDE [Concomitant]
     Active Substance: SODIUM CHLORIDE
  14. MIRALAX [Concomitant]
     Active Substance: POLYETHYLENE GLYCOL 3350

REACTIONS (14)
  - Cardiac valve thickening [Unknown]
  - Fall [Recovering/Resolving]
  - Head injury [Recovering/Resolving]
  - Joint swelling [Unknown]
  - Toe walking [Unknown]
  - Antibody test positive [Not Recovered/Not Resolved]
  - Urinary glycosaminoglycans [Not Recovered/Not Resolved]
  - Unevaluable event [Unknown]
  - Hypoacusis [Unknown]
  - Dysstasia [Recovered/Resolved]
  - Weight bearing difficulty [Unknown]
  - Ear infection [Unknown]
  - Sinusitis [Unknown]
  - Extra dose administered [Unknown]

NARRATIVE: CASE EVENT DATE: 20190101
